FAERS Safety Report 6123818-6 (Version None)
Quarter: 2009Q1

REPORT INFORMATION
  Report Type: 
  Country: None (occurrence: None)
  Receive Date: 20090317
  Receipt Date: 20090317
  Transmission Date: 20090719
  Serious: Yes (Life-Threatening, Hospitalization, Other)
  Sender: FDA-Public Use
  Company Number: None

PATIENT
  Sex: Female
  Weight: 79.3795 kg

DRUGS (2)
  1. PAXIL [Suspect]
     Indication: ANXIETY
     Dosage: 60 MG 1 A DAY PO
     Route: 048
     Dates: start: 19960615, end: 20090315
  2. PAXIL [Suspect]
     Indication: DEPRESSION
     Dosage: 60 MG 1 A DAY PO
     Route: 048
     Dates: start: 19960615, end: 20090315

REACTIONS (3)
  - ANXIETY [None]
  - DEPRESSION [None]
  - SUICIDAL IDEATION [None]
